FAERS Safety Report 8904309 (Version 2)
Quarter: 2014Q4

REPORT INFORMATION
  Report Type: Spontaneous
  Country: DE (occurrence: DE)
  Receive Date: 20121112
  Receipt Date: 20141216
  Transmission Date: 20150529
  Serious: Yes (Other)
  Sender: FDA-Public Use
  Company Number: DE-GLAXOSMITHKLINE-B0843265A

PATIENT
  Sex: Female

DRUGS (9)
  1. FORMOTEROL [Suspect]
     Active Substance: FORMOTEROL
     Indication: ASTHMA
     Route: 065
  2. CITALOPRAM [Suspect]
     Active Substance: CITALOPRAM HYDROBROMIDE
     Indication: PSYCHOTIC DISORDER
     Route: 065
  3. RESTEX [Suspect]
     Active Substance: BENSERAZIDE
     Indication: RESTLESS LEGS SYNDROME
     Dosage: 100+2 MG/DAY
  4. MADOPAR [Suspect]
     Active Substance: BENSERAZIDE HYDROCHLORIDE\LEVODOPA
     Indication: RESTLESS LEGS SYNDROME
     Dosage: 25+6.5 MG/DAY
     Route: 065
  5. DOXEPIN [Suspect]
     Active Substance: DOXEPIN
     Indication: PSYCHOTIC DISORDER
     Route: 065
  6. ETHINYLESTRADIOL [Suspect]
     Active Substance: ETHINYL ESTRADIOL
     Indication: CONTRACEPTION
     Route: 065
  7. QUETIAPINE [Suspect]
     Active Substance: QUETIAPINE
     Indication: PSYCHOTIC DISORDER
     Route: 065
  8. BECLOMETASONE DIPROPIONATE [Suspect]
     Active Substance: BECLOMETHASONE DIPROPIONATE
     Indication: ASTHMA
     Route: 065
  9. LEVONORGESTREL. [Suspect]
     Active Substance: LEVONORGESTREL
     Indication: CONTRACEPTION
     Route: 065

REACTIONS (4)
  - Premature labour [Unknown]
  - Live birth [Unknown]
  - Twin pregnancy [Unknown]
  - Exposure during pregnancy [Unknown]
